FAERS Safety Report 9835446 (Version 1)
Quarter: 2014Q1

REPORT INFORMATION
  Report Type: Spontaneous
  Country: US (occurrence: US)
  Receive Date: 20140122
  Receipt Date: 20140122
  Transmission Date: 20141002
  Serious: Yes (Hospitalization)
  Sender: FDA-Public Use
  Company Number: US-BRISTOL-MYERS SQUIBB COMPANY-19619212

PATIENT
  Age: 86 Year
  Sex: Female
  Weight: 60.77 kg

DRUGS (1)
  1. ELIQUIS [Suspect]

REACTIONS (1)
  - Faeces discoloured [Unknown]
